FAERS Safety Report 7091402-6 (Version None)
Quarter: 2010Q4

REPORT INFORMATION
  Report Type: 
  Country: None (occurrence: None)
  Receive Date: 20101109
  Receipt Date: 20101104
  Transmission Date: 20110411
  Serious: Yes (Hospitalization)
  Sender: FDA-Public Use
  Company Number: A0891345A

PATIENT
  Age: 45 Year
  Sex: Female

DRUGS (1)
  1. VENTOLIN HFA [Suspect]
     Dosage: 90MCG UNKNOWN
     Route: 055
     Dates: start: 20100501

REACTIONS (2)
  - ADVERSE EVENT [None]
  - HEADACHE [None]
